FAERS Safety Report 7746881-5 (Version None)
Quarter: 2011Q3

REPORT INFORMATION
  Report Type: 
  Country: None (occurrence: None)
  Receive Date: 20110913
  Receipt Date: 20110902
  Transmission Date: 20111222
  Serious: Yes (Hospitalization)
  Sender: FDA-Public Use
  Company Number: DE-ALEXION-A201100902

PATIENT
  Sex: Female
  Weight: 82 kg

DRUGS (5)
  1. VALPROIC ACID [Concomitant]
     Indication: CEREBRAL DISORDER
     Dosage: 1200 MG, QD
     Route: 048
  2. ECULIZUMAB [Suspect]
     Indication: HAEMOLYTIC URAEMIC SYNDROME
     Dosage: 900 MG, UNK
     Route: 042
  3. JODID [Concomitant]
     Indication: THYROID NEOPLASM
     Dosage: 100 MG, QD
  4. ACETYLSALICYLIC ACID SRT [Concomitant]
     Indication: THROMBOSIS PROPHYLAXIS
     Dosage: 100 MG, QD
     Route: 048
  5. SOLIRIS [Suspect]
     Indication: HAEMOLYTIC URAEMIC SYNDROME
     Dosage: 900 MG, QW
     Route: 042
     Dates: start: 20110608

REACTIONS (4)
  - APHASIA [None]
  - INFUSION RELATED REACTION [None]
  - COGNITIVE DISORDER [None]
  - DYSAESTHESIA [None]
